FAERS Safety Report 9289447 (Version 1)
Quarter: 2013Q2

REPORT INFORMATION
  Report Type: Spontaneous
  Country: US (occurrence: US)
  Receive Date: 20130514
  Receipt Date: 20130514
  Transmission Date: 20140414
  Serious: Yes (Other)
  Sender: FDA-Public Use
  Company Number: US-PFIZER INC-2013148986

PATIENT
  Age: 81 Year
  Sex: Female
  Weight: 54.42 kg

DRUGS (2)
  1. CENTRUM SILVER WOMEN^S 50+ [Suspect]
     Indication: SUPPLEMENTATION THERAPY
     Dosage: UNK, 1X/DAY
     Route: 048
  2. LIPITOR [Suspect]
     Indication: BLOOD CHOLESTEROL INCREASED
     Dosage: 20 MG, 1X/DAY

REACTIONS (5)
  - Dyspnoea [Unknown]
  - Dysphagia [Unknown]
  - Tablet physical issue [Unknown]
  - Product size issue [Unknown]
  - Drug ineffective [Unknown]
